FAERS Safety Report 4450195-9 (Version None)
Quarter: 2004Q3

REPORT INFORMATION
  Report Type: 
  Country: None (occurrence: None)
  Receive Date: 20040914
  Receipt Date: 20040831
  Transmission Date: 20050211
  Serious: Yes (Hospitalization)
  Sender: FDA-Public Use
  Company Number: 04P-167-0262514-00

PATIENT
  Age: 42 Year
  Sex: Female

DRUGS (6)
  1. HUMIRA [Suspect]
     Indication: SARCOIDOSIS
     Dosage: 40 MG, SUBCUTANEOUS
     Route: 058
     Dates: start: 20040310, end: 20040310
  2. ALENDRONATE SODIUM [Concomitant]
  3. PREDNISOLONE [Concomitant]
  4. LEKOVIT CA [Concomitant]
  5. MYCOPHENOLATE [Concomitant]
  6. OMEPRAZOLE [Concomitant]

REACTIONS (1)
  - ANAPHYLACTIC REACTION [None]
